FAERS Safety Report 8256437-6 (Version None)
Quarter: 2012Q2

REPORT INFORMATION
  Report Type: 
  Country: None (occurrence: None)
  Receive Date: 20120402
  Receipt Date: 20120402
  Transmission Date: 20120825
  Serious: Yes (Hospitalization)
  Sender: FDA-Public Use
  Company Number: None

PATIENT
  Age: 59 Year
  Sex: Male
  Weight: 100.5 kg

DRUGS (2)
  1. CLOPIDOGREL [Suspect]
     Indication: ACUTE CORONARY SYNDROME
     Dosage: 75 MG EVERY DAY PO
     Route: 048
     Dates: start: 20020103, end: 20120328
  2. RANITIDINE [Suspect]
     Indication: GASTROOESOPHAGEAL REFLUX DISEASE
     Dosage: 150 MG BID PO
     Route: 048
     Dates: start: 20020103, end: 20120328

REACTIONS (1)
  - THROMBOCYTOPENIA [None]
